FAERS Safety Report 6912659-5 (Version None)
Quarter: 2010Q3

REPORT INFORMATION
  Report Type: 
  Country: None (occurrence: None)
  Receive Date: 20100806
  Receipt Date: 20080910
  Transmission Date: 20110219
  Serious: No
  Sender: FDA-Public Use
  Company Number: US-PFIZER INC-2008077028

PATIENT
  Sex: Female
  Weight: 136.08 kg

DRUGS (3)
  1. GLUCOTROL XL [Suspect]
     Indication: DIABETES MELLITUS
     Route: 048
     Dates: start: 20071201, end: 20080801
  2. METFORMIN HCL [Concomitant]
  3. BYETTA [Concomitant]

REACTIONS (8)
  - ERYTHEMA [None]
  - EYE IRRITATION [None]
  - LACRIMATION INCREASED [None]
  - RASH [None]
  - SCAR [None]
  - SKIN DISCOLOURATION [None]
  - SKIN SWELLING [None]
  - VISUAL ACUITY REDUCED [None]
